FAERS Safety Report 7166535-6 (Version None)
Quarter: 2010Q4

REPORT INFORMATION
  Report Type: 
  Country: None (occurrence: None)
  Receive Date: 20101203
  Receipt Date: 20100503
  Transmission Date: 20110411
  Serious: No
  Sender: FDA-Public Use
  Company Number: 10-168

PATIENT
  Sex: Male

DRUGS (3)
  1. ERGOCALCIFEROL [Suspect]
     Indication: PRODUCT USED FOR UNKNOWN INDICATION
     Dosage: 2007-2008
  2. FOSAMAX [Concomitant]
  3. CALCIUM [Concomitant]

REACTIONS (2)
  - CONVULSION [None]
  - HIP FRACTURE [None]
